FAERS Safety Report 8187464-5 (Version None)
Quarter: 2012Q1

REPORT INFORMATION
  Report Type: 
  Country: None (occurrence: None)
  Receive Date: 20120306
  Receipt Date: 20120222
  Transmission Date: 20120608
  Serious: Yes (Death)
  Sender: FDA-Public Use
  Company Number: JP-ROCHE-1044942

PATIENT
  Sex: Male

DRUGS (9)
  1. FLUOROURACIL [Suspect]
     Indication: RENAL CELL CARCINOMA STAGE IV
     Dates: start: 20101101, end: 20110101
  2. GOSHA-JINKI-GAN [Concomitant]
     Route: 048
  3. OXALIPLATIN [Concomitant]
     Dates: start: 20110101, end: 20110801
  4. AVASTIN [Suspect]
     Indication: RECTAL CANCER RECURRENT
     Dates: start: 20101101, end: 20110801
  5. FLUOROURACIL [Suspect]
     Dates: start: 20110101, end: 20110801
  6. LEVOLEUCOVORIN CALCIUM [Concomitant]
     Indication: RENAL CELL CARCINOMA STAGE IV
     Dates: start: 20101101, end: 20110801
  7. FLUOROURACIL [Suspect]
     Dates: start: 20101101, end: 20110101
  8. FLUOROURACIL [Suspect]
     Dates: start: 20110101, end: 20110801
  9. OXALIPLATIN [Concomitant]
     Indication: RENAL CELL CARCINOMA STAGE IV
     Dates: start: 20101101, end: 20110101

REACTIONS (2)
  - PNEUMOCYSTIS JIROVECI PNEUMONIA [None]
  - INTERSTITIAL LUNG DISEASE [None]
